FAERS Safety Report 20493722 (Version 2)
Quarter: 2022Q1

REPORT INFORMATION
  Report Type: Spontaneous
  Country: US (occurrence: US)
  Receive Date: 20220221
  Receipt Date: 20220223
  Transmission Date: 20220423
  Serious: No
  Sender: FDA-Public Use
  Company Number: US-NOVARTISTESTPH-NVSC2022US038562

PATIENT
  Sex: Female

DRUGS (2)
  1. PIQRAY [Suspect]
     Active Substance: ALPELISIB
     Indication: Breast cancer metastatic
     Dosage: 300 MG, QD (SLOW RELEASE GRANULE)
     Route: 048
  2. PIQRAY [Suspect]
     Active Substance: ALPELISIB
     Indication: HER2 positive breast cancer

REACTIONS (1)
  - Diarrhoea [Recovered/Resolved]
